FAERS Safety Report 6480622-7 (Version None)
Quarter: 2009Q4

REPORT INFORMATION
  Report Type: 
  Country: None (occurrence: None)
  Receive Date: 20091203
  Receipt Date: 20091120
  Transmission Date: 20100525
  Serious: Yes (Other)
  Sender: FDA-Public Use
  Company Number: 230548M09USA

PATIENT
  Age: 54 Year
  Sex: Female

DRUGS (3)
  1. REBIF [Suspect]
     Indication: MULTIPLE SCLEROSIS
     Dosage: 44 MCG,
     Dates: start: 20070101
  2. TIZANIDINE HCL [Concomitant]
  3. OXYBUTYNIN (OXYBUTYNIN /00538901/) [Concomitant]

REACTIONS (3)
  - CALCINOSIS [None]
  - INJECTION SITE MASS [None]
  - INJECTION SITE PAIN [None]
